FAERS Safety Report 4504140-8 (Version None)
Quarter: 2004Q4

REPORT INFORMATION
  Report Type: 
  Country: None (occurrence: None)
  Receive Date: 20041115
  Receipt Date: 20041103
  Transmission Date: 20050328
  Serious: Yes (Death)
  Sender: FDA-Public Use
  Company Number: 43008K04USA

PATIENT
  Age: 53 Year
  Sex: Female
  Weight: 71.2147 kg

DRUGS (20)
  1. NOVANTRONE [Suspect]
     Indication: MULTIPLE SCLEROSIS
     Dosage: SEE IMAGE
     Dates: start: 20010208, end: 20010912
  2. NOVANTRONE [Suspect]
     Indication: MULTIPLE SCLEROSIS
     Dosage: SEE IMAGE
     Dates: start: 20020108, end: 20020108
  3. NOVANTRONE [Suspect]
     Indication: MULTIPLE SCLEROSIS
     Dosage: SEE IMAGE
     Dates: start: 20020502, end: 20020502
  4. ZANAFLEX [Concomitant]
  5. SINEMET-CR (SINEMET) [Concomitant]
  6. CLONAZEPAM [Concomitant]
  7. DITROPAN [Concomitant]
  8. MACRODANTIN [Concomitant]
  9. PRILOSEC [Concomitant]
  10. L-THYROXINE (LEVOTHYROXINE) [Concomitant]
  11. ZOLOFT [Concomitant]
  12. AVONEX [Concomitant]
  13. COPAXONE [Concomitant]
  14. MULTIVITAMIN [Concomitant]
  15. VITAMIN C (ASCORBIC ACID) [Concomitant]
  16. VITAMIN E [Concomitant]
  17. VITAMIN B COMPLEX (B-COMPLEX ^LECIVA^) [Concomitant]
  18. CALCIUM (CALCIUM) [Concomitant]
  19. HYPERICUM (HYPERICUM EXTRACT) [Concomitant]
  20. GLUCOSAMINE SULFATE (GLUCOSAMINE SULFATE) [Concomitant]

REACTIONS (1)
  - CHEST PAIN [None]
